FAERS Safety Report 9346372 (Version 1)
Quarter: 2013Q2

REPORT INFORMATION
  Report Type: Spontaneous
  Country: GB (occurrence: GB)
  Receive Date: 20130613
  Receipt Date: 20130613
  Transmission Date: 20140414
  Serious: Yes (Disabling, Other)
  Sender: FDA-Public Use
  Company Number: GB-PFIZER INC-2013176132

PATIENT
  Age: 34 Year
  Sex: Female
  Weight: 73 kg

DRUGS (4)
  1. SERTRALINE HCL [Suspect]
     Indication: ANXIETY
     Dosage: 50 MG, UNK
     Route: 048
  2. SERTRALINE HCL [Suspect]
     Dosage: 200 MG, UNK
     Route: 048
  3. SERTRALINE HCL [Suspect]
     Dosage: 100 MG, UNK
     Route: 048
  4. TRIMETHOPRIM [Concomitant]
     Dosage: UNK

REACTIONS (26)
  - Staring [Recovering/Resolving]
  - Somnolence [Recovering/Resolving]
  - Insomnia [Recovered/Resolved with Sequelae]
  - Yawning [Recovered/Resolved]
  - Panic attack [Recovered/Resolved]
  - Disturbance in attention [Recovering/Resolving]
  - Nausea [Recovered/Resolved with Sequelae]
  - Diarrhoea [Recovered/Resolved]
  - Dysuria [Recovered/Resolved with Sequelae]
  - Bladder discomfort [Recovered/Resolved with Sequelae]
  - Anorgasmia [Recovered/Resolved with Sequelae]
  - Tremor [Recovered/Resolved]
  - Dysphemia [Recovered/Resolved]
  - Dizziness [Recovered/Resolved with Sequelae]
  - Fear [Recovered/Resolved]
  - Self-injurious ideation [Recovered/Resolved with Sequelae]
  - Speech disorder [Not Recovered/Not Resolved]
  - Drug ineffective [Unknown]
  - Anxiety [Recovered/Resolved with Sequelae]
  - Decreased eye contact [Recovering/Resolving]
  - Pollakiuria [Recovered/Resolved with Sequelae]
  - Logorrhoea [Not Recovered/Not Resolved]
  - Gait disturbance [Unknown]
  - Condition aggravated [Unknown]
  - Panic disorder [Unknown]
  - Conversion disorder [Unknown]
